FAERS Safety Report 25298057 (Version 3)
Quarter: 2025Q3

REPORT INFORMATION
  Report Type: Spontaneous
  Country: MA (occurrence: MA)
  Receive Date: 20250512
  Receipt Date: 20250804
  Transmission Date: 20251021
  Serious: No
  Sender: ALEXION PHARMACEUTICALS
  Company Number: MA-AstraZeneca-CH-00865532A

PATIENT
  Sex: Male

DRUGS (1)
  1. TAGRISSO [Suspect]
     Active Substance: OSIMERTINIB
     Indication: Lung cancer metastatic
     Dates: start: 20250130, end: 20250420

REACTIONS (1)
  - Inability to afford medication [Unknown]
